FAERS Safety Report 15607742 (Version 1)
Quarter: 2018Q4

REPORT INFORMATION
  Report Type: Spontaneous
  Country: US (occurrence: US)
  Receive Date: 20181112
  Receipt Date: 20181112
  Transmission Date: 20190205
  Serious: No
  Sender: FDA-Public Use
  Company Number: US-BAYER-2018-205581

PATIENT
  Age: 76 Year
  Sex: Female
  Weight: 55.96 kg

DRUGS (2)
  1. ALEVE [Suspect]
     Active Substance: NAPROXEN SODIUM
     Indication: PAIN
     Dosage: 1 DF, Q12H
     Route: 048
     Dates: start: 20181101, end: 20181104
  2. MULTIVITAMIN [Concomitant]
     Active Substance: VITAMINS

REACTIONS (5)
  - Product prescribing issue [Unknown]
  - Heart rate increased [Unknown]
  - Off label use [Unknown]
  - Product use in unapproved indication [Unknown]
  - Palpitations [Unknown]

NARRATIVE: CASE EVENT DATE: 20181101
